FAERS Safety Report 8191854-4 (Version None)
Quarter: 2012Q1

REPORT INFORMATION
  Report Type: 
  Country: None (occurrence: None)
  Receive Date: 20120307
  Receipt Date: 20120228
  Transmission Date: 20120608
  Serious: Yes (Hospitalization, Other)
  Sender: FDA-Public Use
  Company Number: PHHY2011FR097646

PATIENT
  Sex: Male

DRUGS (24)
  1. ASPEGIC 1000 [Concomitant]
     Dosage: 100 MG, QD
  2. HUMALOG [Concomitant]
     Dosage: UNK UKN, TID
  3. INSULATARD NPH HUMAN [Concomitant]
     Dosage: UNK UKN, UNK
  4. ALFUZOSIN HCL [Concomitant]
     Dosage: 10 MG, QD
  5. KETOPROFEN [Concomitant]
     Dosage: 150 MG, BID
  6. TRAMADOL HCL [Concomitant]
     Dosage: 100 MG, BID
  7. ACETAMINOPHEN [Concomitant]
     Dosage: UNK UKN, UNK
  8. ACETAMINOPHEN [Concomitant]
     Dosage: 1000 MG, QD
  9. SODIUM CHLORIDE [Concomitant]
     Dosage: 1.5 G, DAILY
  10. KAYEXALATE [Concomitant]
     Dosage: 1 DF, DAILY
  11. BISOPROLOL FUMARATE [Concomitant]
     Dosage: 2.5 MG, DAILY
  12. MIANSERIN [Concomitant]
     Dosage: 30 MG, QD
  13. PREDNISOLONE [Concomitant]
     Dosage: 5 MG, DAILY
  14. FERROUS SULFATE TAB [Concomitant]
     Dosage: 80 MG, QD
  15. COLCHICINE [Interacting]
     Dosage: 1 DF
     Dates: start: 20110718, end: 20110727
  16. BACTRIM [Concomitant]
     Dosage: 1 DF, QD
     Dates: end: 20110801
  17. ADENURIC [Concomitant]
     Dosage: 80 MG, QD
  18. ALFUZOSIN HCL [Concomitant]
     Dosage: 10 MG, DAILY
  19. NEORAL [Suspect]
     Dosage: 110 MG, BID
     Route: 048
     Dates: start: 20100101, end: 20110805
  20. MYCOPHENOLATE MOFETIL (CELLCEPT) [Concomitant]
     Dosage: 500 MG, BID
     Dates: start: 20100101
  21. LASIX [Concomitant]
     Dosage: 40 MG, DAILY
  22. OMEPRAZOLE [Concomitant]
     Dosage: 20 MG, DAILY
     Route: 048
  23. PRAVASTATIN SODIUM [Interacting]
     Dosage: 40 MG, QD
     Route: 048
     Dates: end: 20110731
  24. PHOSPHONEUROS [Concomitant]
     Dosage: 25 DROPS, QD

REACTIONS (24)
  - RHABDOMYOLYSIS [None]
  - NEUROMYOPATHY [None]
  - MYALGIA [None]
  - THROMBOCYTOPENIA [None]
  - BLOOD BILIRUBIN INCREASED [None]
  - TOXICITY TO VARIOUS AGENTS [None]
  - NERVOUS SYSTEM DISORDER [None]
  - EATING DISORDER [None]
  - NAUSEA [None]
  - LEUKOPENIA [None]
  - HEPATITIS [None]
  - ANAEMIA [None]
  - IMMUNOSUPPRESSANT DRUG LEVEL INCREASED [None]
  - MYOSITIS [None]
  - DIARRHOEA [None]
  - VOMITING [None]
  - DRUG INTERACTION [None]
  - MUSCULAR WEAKNESS [None]
  - ALOPECIA [None]
  - CYSTIC LYMPHANGIOMA [None]
  - RENAL FAILURE [None]
  - DIABETIC NEUROPATHY [None]
  - OEDEMA PERIPHERAL [None]
  - OVERDOSE [None]
